FAERS Safety Report 8021668-7 (Version None)
Quarter: 2012Q1

REPORT INFORMATION
  Report Type: 
  Country: None (occurrence: None)
  Receive Date: 20120104
  Receipt Date: 20120104
  Transmission Date: 20120608
  Serious: Yes (Other)
  Sender: FDA-Public Use
  Company Number: None

PATIENT
  Age: 39 Year
  Sex: Female
  Weight: 66.224 kg

DRUGS (1)
  1. MONISTAT 1 COMBINATION PACK [Suspect]
     Indication: FUNGAL INFECTION
     Dosage: 1 OVULE
     Route: 067
     Dates: start: 20111230, end: 20111230

REACTIONS (8)
  - VAGINAL DISCHARGE [None]
  - NAUSEA [None]
  - INSOMNIA [None]
  - VULVAL DISORDER [None]
  - VULVOVAGINAL PRURITUS [None]
  - BLISTER [None]
  - APPLICATION SITE PAIN [None]
  - GENITAL BURNING SENSATION [None]
